FAERS Safety Report 10054142 (Version 1)
Quarter: 2014Q2

REPORT INFORMATION
  Report Type: Spontaneous
  Country: US (occurrence: US)
  Receive Date: 20140402
  Receipt Date: 20140402
  Transmission Date: 20141212
  Serious: No
  Sender: FDA-Public Use
  Company Number: US-AMGEN-USASP2014017121

PATIENT
  Age: 43 Year
  Sex: Female

DRUGS (2)
  1. ENBREL [Suspect]
     Indication: PSORIATIC ARTHROPATHY
     Dosage: 50 MG, QWK
     Route: 065
     Dates: start: 20120427
  2. METHOTREXATE [Concomitant]
     Dosage: 10 MG, QWK
     Dates: start: 201204

REACTIONS (6)
  - Dysphonia [Not Recovered/Not Resolved]
  - Head discomfort [Not Recovered/Not Resolved]
  - Arthropathy [Recovered/Resolved]
  - Joint swelling [Not Recovered/Not Resolved]
  - Upper respiratory tract infection [Not Recovered/Not Resolved]
  - Injection site pain [Not Recovered/Not Resolved]
